FAERS Safety Report 4363098-5 (Version None)
Quarter: 2004Q2

REPORT INFORMATION
  Report Type: 
  Country: None (occurrence: None)
  Receive Date: 20040518
  Receipt Date: 20040504
  Transmission Date: 20050107
  Serious: Yes (Other)
  Sender: FDA-Public Use
  Company Number: CA-JNJFOC-20040501308

PATIENT
  Age: 65 Year
  Sex: Female
  Weight: 63.5036 kg

DRUGS (1)
  1. PARAFON FORTE [Suspect]
     Indication: BACK PAIN
     Dosage: 2 DOSE (S), IN 1 DAY, ORAL
     Route: 048
     Dates: start: 20040502, end: 20040502

REACTIONS (4)
  - COMMUNICATION DISORDER [None]
  - CONVULSION [None]
  - DISTURBANCE IN ATTENTION [None]
  - DIZZINESS [None]
